FAERS Safety Report 7830235-7 (Version None)
Quarter: 2011Q4

REPORT INFORMATION
  Report Type: 
  Country: None (occurrence: None)
  Receive Date: 20111021
  Receipt Date: 20111012
  Transmission Date: 20120403
  Serious: Yes (Hospitalization)
  Sender: FDA-Public Use
  Company Number: US-MUTUAL PHARMACEUTICAL COMPANY, INC.-CLCY20110142

PATIENT
  Sex: Male
  Weight: 74.3 kg

DRUGS (1)
  1. COLCRYS [Suspect]
     Indication: PRODUCT USED FOR UNKNOWN INDICATION
     Route: 048

REACTIONS (5)
  - OVERDOSE [None]
  - NAUSEA [None]
  - DIARRHOEA [None]
  - VOMITING [None]
  - SUICIDE ATTEMPT [None]
